FAERS Safety Report 7228106-2 (Version None)
Quarter: 2011Q1

REPORT INFORMATION
  Report Type: 
  Country: None (occurrence: None)
  Receive Date: 20110114
  Receipt Date: 20110107
  Transmission Date: 20110831
  Serious: Yes (Other)
  Sender: FDA-Public Use
  Company Number: JP-PFIZER INC-2011006222

PATIENT
  Age: 54 Year
  Sex: Female

DRUGS (2)
  1. LYRICA [Suspect]
     Indication: NEURALGIA
     Dosage: UNK
     Route: 048
     Dates: start: 20101122, end: 20100101
  2. LYRICA [Suspect]
     Dosage: 450 MG, DAILY
     Route: 048
     Dates: start: 20101220

REACTIONS (2)
  - DIZZINESS [None]
  - HYPERTENSION [None]
